FAERS Safety Report 7442030-1 (Version None)
Quarter: 2011Q2

REPORT INFORMATION
  Report Type: 
  Country: None (occurrence: None)
  Receive Date: 20110420
  Receipt Date: 20110405
  Transmission Date: 20111010
  Serious: Yes (Hospitalization)
  Sender: FDA-Public Use
  Company Number: 030609

PATIENT
  Age: 36 Year
  Sex: Male

DRUGS (1)
  1. NITROGLYCERIN [Suspect]
     Indication: ANAL FISSURE
     Dosage: (TOPICAL)
     Route: 061
     Dates: start: 20110211, end: 20110211

REACTIONS (7)
  - PRESYNCOPE [None]
  - NAUSEA [None]
  - HYPERHIDROSIS [None]
  - HYPOTENSION [None]
  - VOMITING [None]
  - COLD SWEAT [None]
  - INCORRECT DOSE ADMINISTERED [None]
